FAERS Safety Report 5103686-1 (Version None)
Quarter: 2006Q3

REPORT INFORMATION
  Report Type: 
  Country: None (occurrence: None)
  Receive Date: 20060911
  Receipt Date: 20060911
  Transmission Date: 20061208
  Serious: Yes (Life-Threatening, Hospitalization)
  Sender: FDA-Public Use
  Company Number: None

PATIENT
  Age: 45 Year
  Sex: Male
  Weight: 56.6996 kg

DRUGS (5)
  1. LYRICA [Suspect]
     Indication: ARTHRALGIA
     Dosage: 1 CAPSULE TWICE DAILY PO LESS THAN 24 HOURS
     Route: 048
     Dates: start: 20060822, end: 20060823
  2. LYRICA [Suspect]
     Indication: JOINT INJURY
     Dosage: 1 CAPSULE TWICE DAILY PO LESS THAN 24 HOURS
     Route: 048
     Dates: start: 20060822, end: 20060823
  3. AMITRIPTYLINE 10 MG SANDO [Suspect]
     Indication: ARTHRALGIA
     Dosage: 1 TABLET ONCE AT BEDTIME PO LESS THAN 24 HOURS
     Route: 048
     Dates: start: 20060822, end: 20060822
  4. AMITRIPTYLINE 10 MG SANDO [Suspect]
     Indication: INSOMNIA
     Dosage: 1 TABLET ONCE AT BEDTIME PO LESS THAN 24 HOURS
     Route: 048
     Dates: start: 20060822, end: 20060822
  5. AMITRIPTYLINE 10 MG SANDO [Suspect]
     Indication: JOINT INJURY
     Dosage: 1 TABLET ONCE AT BEDTIME PO LESS THAN 24 HOURS
     Route: 048
     Dates: start: 20060822, end: 20060822

REACTIONS (26)
  - ABNORMAL SLEEP-RELATED EVENT [None]
  - ASPIRATION [None]
  - ASTHENIA [None]
  - BLINDNESS TRANSIENT [None]
  - CONFUSIONAL STATE [None]
  - DIZZINESS [None]
  - DYSKINESIA [None]
  - DYSPHAGIA [None]
  - DYSPNOEA [None]
  - EYE IRRITATION [None]
  - EYE SWELLING [None]
  - FEELING ABNORMAL [None]
  - FEELING HOT [None]
  - GAIT DISTURBANCE [None]
  - HEADACHE [None]
  - HYPOAESTHESIA [None]
  - HYPOKINESIA [None]
  - HYPOVENTILATION [None]
  - LACRIMATION INCREASED [None]
  - LETHARGY [None]
  - LOSS OF CONSCIOUSNESS [None]
  - MUSCLE TWITCHING [None]
  - POOR QUALITY SLEEP [None]
  - PULSE PRESSURE DECREASED [None]
  - RESPIRATORY ARREST [None]
  - VISUAL DISTURBANCE [None]
